FAERS Safety Report 20700206 (Version 1)
Quarter: 2022Q2

REPORT INFORMATION
  Report Type: Spontaneous
  Country: US (occurrence: US)
  Receive Date: 20220412
  Receipt Date: 20220412
  Transmission Date: 20220720
  Serious: No
  Sender: FDA-Public Use
  Company Number: US-PFIZER INC-202101254428

PATIENT
  Age: 61 Year
  Sex: Male

DRUGS (2)
  1. INLYTA [Suspect]
     Active Substance: AXITINIB
     Indication: Renal cancer
     Dosage: 5 MG, ONCE DAILY
     Route: 048
  2. INLYTA [Suspect]
     Active Substance: AXITINIB
     Indication: Lung neoplasm malignant

REACTIONS (5)
  - Off label use [Unknown]
  - Dysphonia [Unknown]
  - Plantar fasciitis [Unknown]
  - Gait disturbance [Unknown]
  - Pain [Recovered/Resolved]
